FAERS Safety Report 11047582 (Version 5)
Quarter: 2017Q2

REPORT INFORMATION
  Report Type: Spontaneous
  Country: US (occurrence: US)
  Receive Date: 20150420
  Receipt Date: 20170616
  Transmission Date: 20170829
  Serious: No
  Sender: FDA-Public Use
  Company Number: US-009507513-1504USA017095

PATIENT
  Sex: Male

DRUGS (1)
  1. PROPECIA [Suspect]
     Active Substance: FINASTERIDE
     Indication: ALOPECIA
     Dosage: 1 MG, UNK
     Route: 048
     Dates: start: 20130103, end: 2013

REACTIONS (8)
  - Emotional distress [Not Recovered/Not Resolved]
  - Libido decreased [Not Recovered/Not Resolved]
  - Anxiety [Not Recovered/Not Resolved]
  - Self esteem decreased [Unknown]
  - Sexual dysfunction [Not Recovered/Not Resolved]
  - Scrotal pain [Unknown]
  - Depression [Not Recovered/Not Resolved]
  - Sperm concentration decreased [Unknown]

NARRATIVE: CASE EVENT DATE: 2013
